FAERS Safety Report 6716320-1 (Version None)
Quarter: 2010Q2

REPORT INFORMATION
  Report Type: 
  Country: None (occurrence: None)
  Receive Date: 20100507
  Receipt Date: 20100430
  Transmission Date: 20101027
  Serious: Yes (Hospitalization)
  Sender: FDA-Public Use
  Company Number: PHHO2008DE12058

PATIENT
  Sex: Male

DRUGS (7)
  1. SANDIMMUNE [Suspect]
     Indication: LIVER TRANSPLANT
     Dosage: UNK
     Dates: start: 20080901
  2. SIMULECT [Suspect]
     Indication: LIVER TRANSPLANT
     Dosage: 5 MG
     Route: 048
  3. SIMULECT [Suspect]
     Dosage: 4 MG
     Route: 048
  4. NO TREATMENT RECEIVED NOMED [Suspect]
     Indication: LIVER TRANSPLANT
     Dosage: UNK
  5. PROGRAF [Suspect]
     Dosage: 5 MG
     Route: 048
  6. PROGRAF [Suspect]
     Dosage: 4 MG
     Route: 048
  7. DECORTIN [Concomitant]
     Indication: PROPHYLAXIS AGAINST TRANSPLANT REJECTION

REACTIONS (3)
  - HYPERKALAEMIA [None]
  - LIVER TRANSPLANT REJECTION [None]
  - OEDEMA PERIPHERAL [None]
